FAERS Safety Report 8949847 (Version 1)
Quarter: 2012Q4

REPORT INFORMATION
  Report Type: 
  Country: AT (occurrence: AT)
  Receive Date: 20121206
  Receipt Date: 20121206
  Transmission Date: 20130627
  Serious: Yes (Hospitalization, Other)
  Sender: FDA-Public Use
  Company Number: AT-B.I. PHARMACEUTICALS,INC./RIDGEFIELD-2012-BI-02179GD

PATIENT
  Age: 53 Year
  Sex: Male

DRUGS (10)
  1. PRAMIPEXOLE [Suspect]
     Indication: PARKINSONISM
  2. AMANTADINE [Suspect]
     Indication: PARKINSONISM
     Dates: start: 200710, end: 200804
  3. SERTRALINE [Suspect]
  4. APOMORPHINE [Suspect]
     Indication: PARKINSONISM
     Dosage: 90 mg
     Route: 058
     Dates: start: 200710
  5. LEVODOPA [Suspect]
     Indication: PARKINSONISM
  6. SELEGILINE [Suspect]
     Indication: PARKINSONISM
  7. MIRTAZAPINE [Suspect]
  8. CLONAZEPAM [Suspect]
  9. QUETIAPINE [Suspect]
     Dosage: 100 mg
     Dates: start: 200804
  10. CLOZAPINE [Suspect]
     Dosage: 37.5 mg
     Dates: end: 200805

REACTIONS (10)
  - Suicide attempt [Unknown]
  - Impulse-control disorder [Unknown]
  - Depression [Unknown]
  - Psychotic disorder [Unknown]
  - Hallucination, visual [Unknown]
  - On and off phenomenon [Unknown]
  - Dyskinesia [Unknown]
  - Impulsive behaviour [Unknown]
  - Rapid eye movements sleep abnormal [Unknown]
  - Sedation [Unknown]
